FAERS Safety Report 21937135 (Version 1)
Quarter: 2023Q1

REPORT INFORMATION
  Report Type: Spontaneous
  Country: US (occurrence: None)
  Receive Date: 20230131
  Receipt Date: 20230131
  Transmission Date: 20230417
  Serious: No
  Sender: FDA-Public Use
  Company Number: None

PATIENT
  Sex: Male
  Weight: 107.05 kg

DRUGS (10)
  1. KADCYLA [Suspect]
     Active Substance: ADO-TRASTUZUMAB EMTANSINE
     Indication: Breast cancer female
     Dosage: 400MG Q 3WEEKS IV- EVERY 3 WEEKS?
     Route: 050
     Dates: start: 202208
  2. ALBUTEROL [Concomitant]
     Active Substance: ALBUTEROL
  3. ATORVASTATIN [Concomitant]
     Active Substance: ATORVASTATIN
  4. ELIQUIS [Concomitant]
     Active Substance: APIXABAN
  5. FUROSEMIDE [Concomitant]
     Active Substance: FUROSEMIDE
  6. GLIPIZIDE [Concomitant]
     Active Substance: GLIPIZIDE
  7. HYDRALAZINE [Concomitant]
     Active Substance: HYDRALAZINE HYDROCHLORIDE
  8. METFORMIN [Concomitant]
     Active Substance: METFORMIN HYDROCHLORIDE
  9. NEUPOGEN [Concomitant]
     Active Substance: FILGRASTIM
  10. PROCRIT [Concomitant]
     Active Substance: ERYTHROPOIETIN

REACTIONS (1)
  - Thrombocytopenia [None]
